FAERS Safety Report 17269587 (Version 1)
Quarter: 2020Q1

REPORT INFORMATION
  Report Type: Spontaneous
  Country: CA (occurrence: CA)
  Receive Date: 20200114
  Receipt Date: 20200114
  Transmission Date: 20200409
  Serious: Yes (Other)
  Sender: FDA-Public Use
  Company Number: CA-TEVA-2020-CA-1168128

PATIENT
  Age: 44 Year
  Sex: Male

DRUGS (2)
  1. DIBUCAINE HYDROCHLORIDE/HYDROCORTISONE [Suspect]
     Active Substance: DIBUCAINE HYDROCHLORIDE\HYDROCORTISONE
     Route: 061
  2. HYDROCORTISONE. [Suspect]
     Active Substance: HYDROCORTISONE
     Indication: HAEMORRHOIDS
     Route: 065

REACTIONS (2)
  - Pruritus [Recovered/Resolved]
  - Eczema [Recovered/Resolved]
